FAERS Safety Report 8515285-X (Version None)
Quarter: 2012Q3

REPORT INFORMATION
  Report Type: 
  Country: None (occurrence: None)
  Receive Date: 20120717
  Receipt Date: 20120710
  Transmission Date: 20120928
  Serious: Yes (Death)
  Sender: FDA-Public Use
  Company Number: US-AMGEN-USASP2011010398

PATIENT
  Age: 69 Year
  Sex: Male

DRUGS (2)
  1. NEULASTA [Suspect]
     Indication: ANAEMIA
     Dosage: 6 MG, Q3WK
     Route: 058
     Dates: start: 20100910, end: 20110626
  2. NEULASTA [Suspect]
     Indication: NEUTROPENIA
     Dosage: 6 MUG, Q3WK

REACTIONS (10)
  - LUNG NEOPLASM MALIGNANT [None]
  - BACK PAIN [None]
  - CHEST PAIN [None]
  - INFLUENZA LIKE ILLNESS [None]
  - MUSCULOSKELETAL PAIN [None]
  - BONE PAIN [None]
  - ARTHRALGIA [None]
  - PAIN IN EXTREMITY [None]
  - DISEASE PROGRESSION [None]
  - PAIN [None]
